FAERS Safety Report 4326305-0 (Version None)
Quarter: 2004Q1

REPORT INFORMATION
  Report Type: 
  Country: None (occurrence: None)
  Receive Date: 20040325
  Receipt Date: 20040322
  Transmission Date: 20041129
  Serious: Yes (Other)
  Sender: FDA-Public Use
  Company Number: 2004019298

PATIENT
  Age: 67 Year
  Sex: Female
  Weight: 58.9676 kg

DRUGS (7)
  1. SUDAFED 12 HOUR [Suspect]
     Indication: SINUS PAIN
     Dosage: ONCE PER DAY, ORAL .
     Route: 048
     Dates: start: 20040317, end: 20040321
  2. PHENOBARBITAL TAB [Concomitant]
  3. PHENYTOIN SODIUM [Concomitant]
  4. VITAMIN C AND E (ASCORBIC ACID, TOCOPHEROL) [Concomitant]
  5. MULTIVITAMINS (ERGOCALCIFEROL/ASCORBIC ACID, FOLIC ACID, THIAMINE HYDR [Concomitant]
  6. UBIDECAERENONE (UBIDECARENONE) [Concomitant]
  7. ACETYLSALICYLIC ACID SRT [Concomitant]

REACTIONS (1)
  - CONVULSION [None]
